FAERS Safety Report 18654896 (Version 1)
Quarter: 2020Q4

REPORT INFORMATION
  Report Type: Spontaneous
  Country: CO (occurrence: CO)
  Receive Date: 20201223
  Receipt Date: 20201223
  Transmission Date: 20210114
  Serious: Yes (Other)
  Sender: FDA-Public Use
  Company Number: CO-PFIZER INC-2020498725

PATIENT
  Sex: Female

DRUGS (1)
  1. REAMPLA [Suspect]
     Active Substance: PALBOCICLIB
     Dosage: 125 MG
     Route: 048

REACTIONS (7)
  - Coagulopathy [Unknown]
  - Mood altered [Unknown]
  - Pain in extremity [Unknown]
  - Fatigue [Unknown]
  - General physical health deterioration [Unknown]
  - Nausea [Unknown]
  - Haematoma [Unknown]
